FAERS Safety Report 25210950 (Version 3)
Quarter: 2025Q3

REPORT INFORMATION
  Report Type: Spontaneous
  Country: EU (occurrence: EU)
  Receive Date: 20250417
  Receipt Date: 20250805
  Transmission Date: 20251020
  Serious: Yes (Other)
  Sender: PFIZER
  Company Number: EU-SUN PHARMACEUTICAL INDUSTRIES LTD-2025RR-502850

PATIENT
  Age: 84 Year
  Sex: Female

DRUGS (28)
  1. METHYLPREDNISOLONE [Suspect]
     Active Substance: METHYLPREDNISOLONE
     Indication: Pain
     Dosage: 4 MG, DAILY
     Route: 048
  2. METHYLPREDNISOLONE [Suspect]
     Active Substance: METHYLPREDNISOLONE
     Indication: Rheumatoid arthritis
  3. ACETAMINOPHEN [Suspect]
     Active Substance: ACETAMINOPHEN
     Indication: Pain
     Route: 065
  4. ACETAMINOPHEN [Suspect]
     Active Substance: ACETAMINOPHEN
     Indication: Analgesic therapy
  5. ACETAMINOPHEN [Suspect]
     Active Substance: ACETAMINOPHEN
     Indication: Pain management
  6. IBUPROFEN [Suspect]
     Active Substance: IBUPROFEN
     Indication: Pain
     Route: 065
  7. IBUPROFEN [Suspect]
     Active Substance: IBUPROFEN
     Indication: Pain management
  8. IBUPROFEN [Suspect]
     Active Substance: IBUPROFEN
     Indication: Analgesic therapy
  9. TRAMADOL [Suspect]
     Active Substance: TRAMADOL
     Indication: Pain
     Route: 065
  10. TRAMADOL [Suspect]
     Active Substance: TRAMADOL
     Indication: Pain management
  11. TRAMADOL [Suspect]
     Active Substance: TRAMADOL
     Indication: Analgesic therapy
  12. KETOPROFEN [Suspect]
     Active Substance: KETOPROFEN
     Indication: Pain
     Route: 065
  13. KETOPROFEN [Suspect]
     Active Substance: KETOPROFEN
     Indication: Arthralgia
  14. KETOPROFEN [Suspect]
     Active Substance: KETOPROFEN
     Indication: Pain management
  15. KETOPROFEN [Suspect]
     Active Substance: KETOPROFEN
     Indication: Analgesic therapy
  16. METHOTREXATE [Suspect]
     Active Substance: METHOTREXATE
     Indication: Pain
     Dosage: 15 MG, WEEKLY (FREQ:7 D;15 MILLIGRAM, WEEKLY)
     Route: 058
  17. METHOTREXATE [Suspect]
     Active Substance: METHOTREXATE
     Indication: Rheumatoid arthritis
  18. NIMESULIDE [Suspect]
     Active Substance: NIMESULIDE
     Indication: Pain
     Route: 065
  19. NIMESULIDE [Suspect]
     Active Substance: NIMESULIDE
     Indication: Analgesic therapy
  20. NIMESULIDE [Suspect]
     Active Substance: NIMESULIDE
     Indication: Pain management
  21. ACETAMINOPHEN\TRAMADOL [Suspect]
     Active Substance: ACETAMINOPHEN\TRAMADOL
     Indication: Pain management
     Dosage: 4 DF, DAILY
  22. ACETAMINOPHEN\TRAMADOL [Suspect]
     Active Substance: ACETAMINOPHEN\TRAMADOL
     Indication: Analgesic therapy
  23. FOLIC ACID [Concomitant]
     Active Substance: FOLIC ACID
     Indication: Supplementation therapy
     Dosage: 15 MG, WEEKLY
  24. VITAMIN B12 [Concomitant]
     Active Substance: CYANOCOBALAMIN
     Indication: Vitamin B12 deficiency
  25. VITAMIN D3 [Concomitant]
     Active Substance: CHOLECALCIFEROL
     Indication: Vitamin D deficiency
  26. HERBAL NOS [Concomitant]
     Active Substance: HERBALS
     Indication: Product used for unknown indication
     Route: 065
  27. GLUCOSAMINE [Concomitant]
     Active Substance: GLUCOSAMINE
     Indication: Product used for unknown indication
     Route: 065
  28. CHONDROITIN [Concomitant]
     Active Substance: CHONDROITIN
     Indication: Product used for unknown indication
     Route: 065

REACTIONS (1)
  - Drug ineffective [Unknown]
